FAERS Safety Report 19155108 (Version 1)
Quarter: 2021Q2

REPORT INFORMATION
  Report Type: Spontaneous
  Country: FR (occurrence: FR)
  Receive Date: 20210419
  Receipt Date: 20210419
  Transmission Date: 20210717
  Serious: Yes (Other)
  Sender: FDA-Public Use
  Company Number: FR-MYLANLABS-2021M1022876

PATIENT
  Age: 36 Year
  Sex: Female
  Weight: 68 kg

DRUGS (7)
  1. EMLA [Concomitant]
     Active Substance: LIDOCAINE\PRILOCAINE
     Indication: PAIN PROPHYLAXIS
     Dosage: 1 DOSAGE FORM, MONTHLY
     Route: 003
     Dates: start: 20201116
  2. NIVESTIM [Concomitant]
     Active Substance: FILGRASTIM
     Indication: CHEMOTHERAPY CYTOKINE PROPHYLAXIS
     Dosage: 5 DOSAGE FORM, BIWEEKLY 30 MU/0.5 ML
     Route: 058
     Dates: start: 20201115
  3. ENANTONE LP [Concomitant]
     Active Substance: LEUPROLIDE ACETATE
     Dosage: 1 DOSAGE FORM, MONTHLY
     Route: 058
     Dates: start: 20201117
  4. ONDANSETRON [Concomitant]
     Active Substance: ONDANSETRON
     Indication: PROPHYLAXIS OF NAUSEA AND VOMITING
     Dosage: 48 MILLIGRAM, BIWEEKLY
     Route: 048
     Dates: start: 20201120
  5. CYCLOPHOSPHAMIDE. [Interacting]
     Active Substance: CYCLOPHOSPHAMIDE
     Indication: BREAST CANCER
     Dosage: 900 MILLIGRAM, BIMONTHLY
     Route: 042
     Dates: start: 20201112
  6. EPIRUBICIN [Suspect]
     Active Substance: EPIRUBICIN
     Indication: BREAST CANCER
     Dosage: 156 MILLIGRAM, BIMONTHLY
     Route: 042
     Dates: start: 20201112
  7. PREDNISOLONE. [Concomitant]
     Active Substance: PREDNISOLONE
     Indication: PROPHYLAXIS OF NAUSEA AND VOMITING
     Dosage: 120 MILLIGRAM, BIWEEKLY
     Route: 048
     Dates: start: 20201120

REACTIONS (2)
  - Neutropenia [Not Recovered/Not Resolved]
  - Drug interaction [Not Recovered/Not Resolved]

NARRATIVE: CASE EVENT DATE: 20201210
